FAERS Safety Report 20041682 (Version 2)
Quarter: 2021Q4

REPORT INFORMATION
  Report Type: Report from Study
  Country: EC (occurrence: None)
  Receive Date: 20211108
  Receipt Date: 20211118
  Transmission Date: 20220303
  Serious: Yes (Hospitalization, Other)
  Sender: FDA-Public Use
  Company Number: EC-Merck Healthcare KGaA-9276627

PATIENT
  Age: 19 Year
  Sex: Male

DRUGS (1)
  1. REBIF [Suspect]
     Active Substance: INTERFERON BETA-1A
     Indication: Multiple sclerosis
     Dosage: EXPIRY DATE: ?F.E: /APR/2020, F.V: /MAR/2022
     Route: 058
     Dates: start: 20180221

REACTIONS (5)
  - Appendicitis [Recovered/Resolved]
  - Post procedural infection [Recovered/Resolved]
  - Gastrointestinal infection [Recovered/Resolved]
  - Weight decreased [Unknown]
  - Therapy interrupted [Unknown]

NARRATIVE: CASE EVENT DATE: 20211001
